FAERS Safety Report 5532785-5 (Version None)
Quarter: 2007Q4

REPORT INFORMATION
  Report Type: 
  Country: None (occurrence: None)
  Receive Date: 20071204
  Receipt Date: 20071119
  Transmission Date: 20080405
  Serious: Yes (Other)
  Sender: FDA-Public Use
  Company Number: GB-BAYER-GB-2007-043581

PATIENT
  Sex: Female

DRUGS (1)
  1. ULTRAVIST (PHARMACY BULK) [Suspect]
     Indication: DRUG USE FOR UNKNOWN INDICATION

REACTIONS (1)
  - RESPIRATORY DISTRESS [None]
